FAERS Safety Report 23660665 (Version 1)
Quarter: 2024Q1

REPORT INFORMATION
  Report Type: Spontaneous
  Country: GB (occurrence: GB)
  Receive Date: 20240322
  Receipt Date: 20240322
  Transmission Date: 20240410
  Serious: Yes (Other)
  Sender: FDA-Public Use
  Company Number: None

PATIENT
  Age: 49 Year
  Sex: Female

DRUGS (16)
  1. OMEPRAZOLE [Suspect]
     Active Substance: OMEPRAZOLE
     Route: 065
  2. FEXOFENADINE [Concomitant]
     Active Substance: FEXOFENADINE HYDROCHLORIDE
  3. BALNEUM PLUS [Concomitant]
  4. TRAMADOL [Concomitant]
     Active Substance: TRAMADOL\TRAMADOL HYDROCHLORIDE
     Dosage: ON REGULARLY THEN 50-100MG OD PRN
  5. INDAPAMIDE [Concomitant]
     Active Substance: INDAPAMIDE
     Dosage: MORNING
  6. CHLORPHENIRAMINE MALEATE [Concomitant]
     Active Substance: CHLORPHENIRAMINE MALEATE
     Dosage: ON PRN
  7. UTROGESTAN [Concomitant]
     Active Substance: PROGESTERONE
     Dosage: NIGHT
  8. TESTOSTERONE [Concomitant]
     Active Substance: TESTOSTERONE
  9. CHOLECALCIFEROL [Concomitant]
     Active Substance: CHOLECALCIFEROL
  10. DICLOFENAC DIETHYLAMINE [Concomitant]
     Active Substance: DICLOFENAC DIETHYLAMINE
     Dosage: TIME INTERVAL: 0.33333333 DAYS: PRN RARELY AS USES NAPROXEN
  11. ESTRADIOL [Concomitant]
     Active Substance: ESTRADIOL
     Dosage: MORNING AND NIGHT THEN 1 PUMP PRN OD IF NEEDED
  12. NAPROXEN [Concomitant]
     Active Substance: NAPROXEN
     Dosage: REGULARLY
  13. ACYCLOVIR [Concomitant]
     Active Substance: ACYCLOVIR
  14. SENNA [Concomitant]
     Active Substance: SENNA LEAF\SENNOSIDES\SENNOSIDES A AND B
     Dosage: NIGHT
  15. ACETAMINOPHEN [Concomitant]
     Active Substance: ACETAMINOPHEN
     Dosage: EVERY 4 - 6 HOURS UP TO FOUR TIMES A DAY
  16. CROMOLYN SODIUM [Concomitant]
     Active Substance: CROMOLYN SODIUM
     Dosage: TIME INTERVAL: 0.33333333 DAYS

REACTIONS (1)
  - Femoral neck fracture [Recovered/Resolved with Sequelae]
